FAERS Safety Report 12935953 (Version 2)
Quarter: 2016Q4

REPORT INFORMATION
  Report Type: Spontaneous
  Country: DE (occurrence: DE)
  Receive Date: 20161114
  Receipt Date: 20161121
  Transmission Date: 20170207
  Serious: Yes (Hospitalization)
  Sender: FDA-Public Use
  Company Number: DE-AUROBINDO-AUR-APL-2016-14034

PATIENT
  Age: 71 Year
  Sex: Male

DRUGS (8)
  1. METFORMIN [Concomitant]
     Active Substance: METFORMIN HYDROCHLORIDE
     Indication: PRODUCT USED FOR UNKNOWN INDICATION
     Dosage: 1000 MG, UNK
     Route: 048
  2. MELPERON [Interacting]
     Active Substance: MELPERONE
     Indication: PRODUCT USED FOR UNKNOWN INDICATION
     Dosage: 50 MG, ONCE A DAY
     Route: 048
     Dates: start: 20120216, end: 20140904
  3. NORTRILEN [Suspect]
     Active Substance: NORTRIPTYLINE
     Dosage: 50 MG, ONCE A DAY
     Route: 048
     Dates: start: 20140907, end: 20140908
  4. NORTRILEN [Suspect]
     Active Substance: NORTRIPTYLINE
     Dosage: 75 MG, ONCE A DAY
     Route: 048
     Dates: start: 20140906
  5. SERTRALINE [Suspect]
     Active Substance: SERTRALINE HYDROCHLORIDE
     Indication: PRODUCT USED FOR UNKNOWN INDICATION
     Dosage: 150 MG, ONCE A DAY
     Route: 048
     Dates: start: 20130831
  6. MIRTAZAPINE 30MG [Suspect]
     Active Substance: MIRTAZAPINE
     Indication: PRODUCT USED FOR UNKNOWN INDICATION
     Dosage: 30 MG, ONCE A DAY
     Route: 048
     Dates: start: 20130801
  7. NORTRILEN [Suspect]
     Active Substance: NORTRIPTYLINE
     Dosage: 25 MG, ONCE A DAY
     Route: 048
     Dates: start: 20140909, end: 20140911
  8. NORTRILEN [Suspect]
     Active Substance: NORTRIPTYLINE
     Indication: PRODUCT USED FOR UNKNOWN INDICATION
     Dosage: 100 MG, ONCE A DAY
     Route: 048
     Dates: start: 20130503, end: 20140904

REACTIONS (8)
  - Disorganised speech [Recovered/Resolved]
  - Drug interaction [Recovered/Resolved]
  - Delirium [Recovered/Resolved]
  - Disturbance in attention [Recovered/Resolved]
  - Altered state of consciousness [Recovered/Resolved]
  - Vision blurred [Recovered/Resolved]
  - Disorientation [Recovered/Resolved]
  - Confusional state [Recovered/Resolved]

NARRATIVE: CASE EVENT DATE: 20140820
